FAERS Safety Report 26208146 (Version 1)
Quarter: 2025Q4

REPORT INFORMATION
  Report Type: Spontaneous
  Country: US (occurrence: None)
  Receive Date: 20251224
  Receipt Date: 20251224
  Transmission Date: 20260118
  Serious: No
  Sender: FDA-CTU
  Company Number: None

PATIENT
  Sex: Male

DRUGS (1)
  1. SKYRIZI [Suspect]
     Active Substance: RISANKIZUMAB-RZAA
     Indication: Colitis ulcerative
     Dosage: 360 MG/ML EVERY 8 WEEKS  SUBCUTANEOUS
     Route: 058
     Dates: start: 20250204

REACTIONS (3)
  - Drug ineffective [None]
  - Depression [None]
  - Frustration tolerance decreased [None]
